FAERS Safety Report 4996952-1 (Version None)
Quarter: 2006Q2

REPORT INFORMATION
  Report Type: 
  Country: None (occurrence: None)
  Receive Date: 20060509
  Receipt Date: 20051019
  Transmission Date: 20061013
  Serious: Yes (Other)
  Sender: FDA-Public Use
  Company Number: BR-ROCHE-422288

PATIENT
  Sex: Male
  Weight: 3.8 kg

DRUGS (2)
  1. ROACUTAN [Suspect]
     Indication: ACNE
     Dates: start: 20050715, end: 20051018
  2. SELENE [Concomitant]
     Indication: CONTRACEPTION
     Dates: start: 20050615, end: 20051018

REACTIONS (5)
  - CAESAREAN SECTION [None]
  - DRUG EXPOSURE DURING PREGNANCY [None]
  - NO ADVERSE EFFECT [None]
  - NORMAL NEWBORN [None]
  - PREGNANCY ON ORAL CONTRACEPTIVE [None]
